FAERS Safety Report 5540889-6 (Version None)
Quarter: 2007Q4

REPORT INFORMATION
  Report Type: 
  Country: None (occurrence: None)
  Receive Date: 20071129
  Receipt Date: 20070628
  Transmission Date: 20080405
  Serious: Yes (Other)
  Sender: FDA-Public Use
  Company Number: US200706006413

PATIENT
  Age: 43 Year
  Sex: Female

DRUGS (12)
  1. ZYPREXA [Suspect]
     Indication: DEPRESSION
     Dosage: 15 MG, EACH EVENING, ORAL
     Route: 048
     Dates: start: 20060101
  2. CYMBALTA [Concomitant]
  3. PHENERGAN [Concomitant]
  4. FENTANYL [Concomitant]
  5. OXYCODONE HCL [Concomitant]
  6. PREMARIN (ESTROGENS CONJUGATED, MEDROGESTONE) [Concomitant]
  7. BENADRYL (DIPHENHYDRAMINE HYDROCHLORIDE, PARACETAMOL, PSEUDOEPHEDRINE [Concomitant]
  8. XANAX [Concomitant]
  9. ACETAMINOPHEN [Concomitant]
  10. BACLOFEN [Concomitant]
  11. PROTONIX [Concomitant]
  12. REGLAN [Concomitant]

REACTIONS (1)
  - BLOOD TRIGLYCERIDES INCREASED [None]
